FAERS Safety Report 4294381-X (Version None)
Quarter: 2004Q1

REPORT INFORMATION
  Report Type: 
  Country: None (occurrence: None)
  Receive Date: 20040211
  Receipt Date: 20040203
  Transmission Date: 20041129
  Serious: Yes (Other)
  Sender: FDA-Public Use
  Company Number: CA-BRISTOL-MYERS SQUIBB COMPANY-12494639

PATIENT
  Age: 50 Year
  Sex: Male
  Weight: 79 kg

DRUGS (8)
  1. CISPLATIN [Suspect]
     Indication: BLADDER CANCER
     Dates: start: 20040115, end: 20040115
  2. GEMCITABINE [Suspect]
     Indication: BLADDER CANCER
     Dosage: TOTAL DOSE = 6000 MG  1ST DOSE ON 15JAN04
     Dates: start: 20040128, end: 20040128
  3. ATENOLOL [Concomitant]
     Indication: HYPERTENSION
     Dates: start: 20031001
  4. IBUPROFEN [Concomitant]
     Indication: PAIN PROPHYLAXIS
     Dates: start: 20031101
  5. DECADRON [Concomitant]
     Indication: VOMITING
     Dates: start: 20040115
  6. ZOFRAN [Concomitant]
     Indication: VOMITING
     Dates: start: 20040115
  7. COLACE [Concomitant]
     Indication: CONSTIPATION
     Dates: start: 20040115
  8. SENOKOT [Concomitant]
     Indication: CONSTIPATION
     Dates: start: 20040115

REACTIONS (3)
  - DEEP VEIN THROMBOSIS [None]
  - PLATELET COUNT DECREASED [None]
  - WHITE BLOOD CELL COUNT DECREASED [None]
